APPROVED DRUG PRODUCT: DICLOFENAC SODIUM
Active Ingredient: DICLOFENAC SODIUM
Strength: 2%
Dosage Form/Route: SOLUTION;TOPICAL
Application: A208198 | Product #001 | TE Code: AB
Applicant: AMNEAL PHARMACEUTICALS LLC
Approved: Aug 18, 2022 | RLD: No | RS: No | Type: RX